FAERS Safety Report 6538777-1 (Version None)
Quarter: 2010Q1

REPORT INFORMATION
  Report Type: 
  Country: None (occurrence: None)
  Receive Date: 20100114
  Receipt Date: 20100114
  Transmission Date: 20100710
  Serious: Yes (Other)
  Sender: FDA-Public Use
  Company Number: None

PATIENT
  Sex: Female
  Weight: 19.0511 kg

DRUGS (2)
  1. SINGULAIR [Suspect]
     Indication: ASTHMA
     Dosage: 4MG 1 TIME A DAY PO
     Route: 048
     Dates: start: 20060104, end: 20080630
  2. SINGULAIR [Suspect]
     Indication: ASTHMA
     Dosage: 4MG 1 TIME A DAY PO
     Route: 048
     Dates: start: 20091001, end: 20100113

REACTIONS (4)
  - ABNORMAL BEHAVIOUR [None]
  - AGGRESSION [None]
  - PSYCHOMOTOR HYPERACTIVITY [None]
  - SCREAMING [None]
